FAERS Safety Report 7505257-6 (Version None)
Quarter: 2011Q2

REPORT INFORMATION
  Report Type: 
  Country: None (occurrence: None)
  Receive Date: 20110517
  Receipt Date: 20110511
  Transmission Date: 20111010
  Serious: Yes (Other)
  Sender: FDA-Public Use
  Company Number: 2009SP038965

PATIENT
  Age: 20 Year
  Sex: Female
  Weight: 43.0917 kg

DRUGS (8)
  1. LORTAB [Suspect]
     Indication: HEADACHE
  2. ALBUTEROL SULFATE AUTOHALER [Concomitant]
  3. NUVARING [Suspect]
     Indication: CONTRACEPTION
     Dates: start: 20080320, end: 20090726
  4. NUVARING [Suspect]
     Indication: MENSTRUATION IRREGULAR
     Dates: start: 20080320, end: 20090726
  5. NUVARING [Suspect]
     Indication: CONTRACEPTION
     Dates: start: 20050401, end: 20070101
  6. NUVARING [Suspect]
     Indication: MENSTRUATION IRREGULAR
     Dates: start: 20050401, end: 20070101
  7. IBUPROFEN [Concomitant]
  8. EXCEDRIN (MIGRAINE) [Concomitant]

REACTIONS (45)
  - VULVOVAGINAL BURNING SENSATION [None]
  - IRRITABILITY [None]
  - DYSPNOEA [None]
  - SUICIDAL IDEATION [None]
  - RHINITIS ALLERGIC [None]
  - PREGNANCY [None]
  - ASTHMA [None]
  - THIRST [None]
  - DEPRESSION [None]
  - VULVOVAGINAL CANDIDIASIS [None]
  - ASTHENIA [None]
  - COUGH [None]
  - LOWER RESPIRATORY TRACT INFECTION [None]
  - ABDOMINAL PAIN UPPER [None]
  - VENOUS THROMBOSIS [None]
  - OVARIAN CYST RUPTURED [None]
  - NAUSEA [None]
  - PROCTALGIA [None]
  - DRUG EXPOSURE DURING PREGNANCY [None]
  - PANIC ATTACK [None]
  - PROTEIN C DEFICIENCY [None]
  - DEEP VEIN THROMBOSIS [None]
  - HAEMATOCHEZIA [None]
  - GASTRIC DISORDER [None]
  - OVARIAN CYST [None]
  - INTERNATIONAL NORMALISED RATIO INCREASED [None]
  - MIGRAINE [None]
  - PAROTITIS [None]
  - VULVOVAGINAL PRURITUS [None]
  - HEADACHE [None]
  - CHEST PAIN [None]
  - CYSTITIS [None]
  - URINARY TRACT INFECTION BACTERIAL [None]
  - CONSTIPATION [None]
  - RECTAL HAEMORRHAGE [None]
  - THROMBOSIS [None]
  - ESCHERICHIA URINARY TRACT INFECTION [None]
  - PNEUMONIA [None]
  - DECREASED INTEREST [None]
  - ABDOMINAL PAIN LOWER [None]
  - BACK PAIN [None]
  - DYSURIA [None]
  - PYELONEPHRITIS [None]
  - SINUSITIS [None]
  - HAEMORRHOIDS [None]
